FAERS Safety Report 21705063 (Version 1)
Quarter: 2022Q4

REPORT INFORMATION
  Report Type: Report from Study
  Country: US (occurrence: US)
  Receive Date: 20221209
  Receipt Date: 20221209
  Transmission Date: 20230113
  Serious: No
  Sender: FDA-Public Use
  Company Number: US-ABBVIE-4193432

PATIENT
  Age: 35 Year
  Sex: Female

DRUGS (1)
  1. HUMIRA [Suspect]
     Active Substance: ADALIMUMAB
     Indication: Hidradenitis
     Route: 058

REACTIONS (8)
  - Skin lesion [Unknown]
  - Pustule [Unknown]
  - Joint range of motion decreased [Unknown]
  - Venous injury [Unknown]
  - Pain in extremity [Unknown]
  - Back disorder [Unknown]
  - Ovarian cyst [Unknown]
  - Contusion [Unknown]

NARRATIVE: CASE EVENT DATE: 20221106
